FAERS Safety Report 7062614-2 (Version None)
Quarter: 2010Q4

REPORT INFORMATION
  Report Type: 
  Country: None (occurrence: None)
  Receive Date: 20101026
  Receipt Date: 20091202
  Transmission Date: 20110411
  Serious: No
  Sender: FDA-Public Use
  Company Number: US-PFIZER INC-2009287824

PATIENT
  Sex: Male

DRUGS (1)
  1. LIPITOR [Suspect]

REACTIONS (4)
  - LYMPHOCYTE MORPHOLOGY ABNORMAL [None]
  - NORMOCHROMIC NORMOCYTIC ANAEMIA [None]
  - PLATELET COUNT DECREASED [None]
  - VIRAL INFECTION [None]
